FAERS Safety Report 6416308-4 (Version None)
Quarter: 2009Q4

REPORT INFORMATION
  Report Type: 
  Country: None (occurrence: None)
  Receive Date: 20091022
  Receipt Date: 20091012
  Transmission Date: 20100525
  Serious: Yes (Hospitalization, Other)
  Sender: FDA-Public Use
  Company Number: 014622

PATIENT
  Age: 42 Year
  Sex: Female

DRUGS (13)
  1. PRIALT [Suspect]
     Indication: POST LAMINECTOMY SYNDROME
     Dosage: SEE IMAGE; INTRATHECAL
     Route: 037
     Dates: start: 20090629, end: 20090101
  2. PRIALT [Suspect]
     Indication: POST LAMINECTOMY SYNDROME
     Dosage: SEE IMAGE; INTRATHECAL
     Route: 037
     Dates: start: 20090701, end: 20090701
  3. PRIALT [Suspect]
     Indication: POST LAMINECTOMY SYNDROME
     Dosage: SEE IMAGE; INTRATHECAL
     Route: 037
     Dates: start: 20090706, end: 20090701
  4. PRIALT [Suspect]
     Indication: POST LAMINECTOMY SYNDROME
     Dosage: SEE IMAGE; INTRATHECAL
     Route: 037
     Dates: start: 20090708, end: 20090701
  5. PRIALT [Suspect]
     Indication: POST LAMINECTOMY SYNDROME
     Dosage: SEE IMAGE; INTRATHECAL
     Route: 037
     Dates: start: 20090720, end: 20090801
  6. PRIALT [Suspect]
     Indication: POST LAMINECTOMY SYNDROME
     Dosage: SEE IMAGE; INTRATHECAL
     Route: 037
     Dates: start: 20090807
  7. HYDROMORPHONE HYDROCHLORIDE [Concomitant]
  8. CYMBALTA [Concomitant]
  9. LYRICA [Concomitant]
  10. KATADOLON (FLUPIRTINE MALEATE) [Concomitant]
  11. ARCOXIA [Concomitant]
  12. ORAMORPH SR [Concomitant]
  13. PROMETHAZINE HCL [Concomitant]

REACTIONS (5)
  - COMA [None]
  - CONFUSIONAL STATE [None]
  - DIZZINESS [None]
  - DRUG TOXICITY [None]
  - SOMNOLENCE [None]
